FAERS Safety Report 6441619-6 (Version None)
Quarter: 2009Q4

REPORT INFORMATION
  Report Type: 
  Country: None (occurrence: None)
  Receive Date: 20091113
  Receipt Date: 20091113
  Transmission Date: 20100525
  Serious: Yes (Hospitalization)
  Sender: FDA-Public Use
  Company Number: None

PATIENT
  Age: 37 Year
  Sex: Female
  Weight: 48.0813 kg

DRUGS (1)
  1. LENALIDOMIDE 25 MG [Suspect]
     Indication: HODGKIN'S DISEASE
     Dosage: 25 MG PO DAILY
     Route: 048
     Dates: start: 20090903, end: 20091111

REACTIONS (1)
  - PNEUMONIA [None]
